FAERS Safety Report 10613709 (Version 1)
Quarter: 2014Q4

REPORT INFORMATION
  Report Type: Spontaneous
  Country: US (occurrence: US)
  Receive Date: 20141128
  Receipt Date: 20141128
  Transmission Date: 20150529
  Serious: Yes (Hospitalization)
  Sender: FDA-Public Use
  Company Number: US-TEVA-524870USA

PATIENT
  Age: 59 Year
  Sex: Male
  Weight: 90.8 kg

DRUGS (5)
  1. FENTANYL. [Concomitant]
     Active Substance: FENTANYL
  2. FENTORA [Suspect]
     Active Substance: FENTANYL CITRATE
     Indication: DIABETIC NEUROPATHY
     Dosage: 200MCG TO 400MCG TO 7 TO 8 TABLETS A DAY
     Route: 002
  3. ACTIQ [Concomitant]
     Active Substance: FENTANYL CITRATE
  4. THALITONE [Concomitant]
     Active Substance: CHLORTHALIDONE
  5. AMIODARONE [Concomitant]
     Active Substance: AMIODARONE

REACTIONS (3)
  - Staphylococcal sepsis [Unknown]
  - Product use issue [Unknown]
  - Cardiac operation [Unknown]

NARRATIVE: CASE EVENT DATE: 201408
